FAERS Safety Report 16843912 (Version 1)
Quarter: 2019Q4

REPORT INFORMATION
  Report Type: Spontaneous
  Country: US (occurrence: US)
  Receive Date: 20190923
  Receipt Date: 20190923
  Transmission Date: 20200122
  Serious: Yes (Hospitalization)
  Sender: FDA-Public Use
  Company Number: None

PATIENT
  Age: 47 Year
  Sex: Male

DRUGS (6)
  1. HYDROCO/APAP [Concomitant]
     Active Substance: ACETAMINOPHEN\HYDROCODONE
  2. PANTOPRAZOLE [Concomitant]
     Active Substance: PANTOPRAZOLE
  3. PREDNISONE. [Concomitant]
     Active Substance: PREDNISONE
  4. CIMZIA [Suspect]
     Active Substance: CERTOLIZUMAB PEGOL
     Indication: SPONDYLOARTHROPATHY
     Dosage: ?          OTHER FREQUENCY:Q4WKS;?
     Route: 058
     Dates: start: 20171020
  5. SUCRALFATE. [Concomitant]
     Active Substance: SUCRALFATE
  6. RANITIDINE. [Concomitant]
     Active Substance: RANITIDINE

REACTIONS (2)
  - Gastric ulcer perforation [None]
  - Haemorrhage [None]

NARRATIVE: CASE EVENT DATE: 20190616
